FAERS Safety Report 4686382-4 (Version None)
Quarter: 2005Q2

REPORT INFORMATION
  Report Type: 
  Country: None (occurrence: None)
  Receive Date: 20050606
  Receipt Date: 20050525
  Transmission Date: 20051028
  Serious: Yes (Other)
  Sender: FDA-Public Use
  Company Number: 2005079930

PATIENT
  Age: 54 Year
  Sex: Female

DRUGS (2)
  1. DOXORUBICIN HYDROCHLORIDE [Suspect]
     Indication: BREAST CANCER
     Dosage: 50 MG/M*2
  2. DOCETAXEL (DOCETAXEL) [Suspect]
     Indication: BREAST CANCER
     Dosage: 75 MG/M*2

REACTIONS (4)
  - DIVERTICULUM [None]
  - FEBRILE NEUTROPENIA [None]
  - PERITONITIS [None]
  - SEPTIC SHOCK [None]
